APPROVED DRUG PRODUCT: KALEXATE
Active Ingredient: SODIUM POLYSTYRENE SULFONATE
Strength: 15GM/BOT
Dosage Form/Route: POWDER;ORAL, RECTAL
Application: A040905 | Product #002
Applicant: KVK TECH INC
Approved: Apr 3, 2015 | RLD: No | RS: No | Type: RX